FAERS Safety Report 9328167 (Version 1)
Quarter: 2013Q2

REPORT INFORMATION
  Report Type: Spontaneous
  Country: US (occurrence: US)
  Receive Date: 20130604
  Receipt Date: 20130604
  Transmission Date: 20140414
  Serious: No
  Sender: FDA-Public Use
  Company Number: US-SANOFI-AVENTIS-2012SA036562

PATIENT
  Age: 55 Year
  Sex: Female

DRUGS (5)
  1. LANTUS [Suspect]
     Indication: TYPE 2 DIABETES MELLITUS
     Dosage: DOSE:90 UNIT(S)
     Route: 058
     Dates: start: 20120402, end: 20120529
  2. LANTUS [Suspect]
     Indication: TYPE 2 DIABETES MELLITUS
     Dosage: DOSE:90 UNIT(S)
     Route: 058
     Dates: start: 20120603
  3. SOLOSTAR [Suspect]
     Indication: TYPE 2 DIABETES MELLITUS
     Dates: start: 20120402
  4. NOVOLOG [Suspect]
     Route: 065
     Dates: start: 20120402
  5. GLUCOPHAGE [Suspect]
     Route: 065

REACTIONS (1)
  - Abdominal pain upper [Not Recovered/Not Resolved]
